FAERS Safety Report 7479244-0 (Version None)
Quarter: 2011Q2

REPORT INFORMATION
  Report Type: 
  Country: None (occurrence: None)
  Receive Date: 20110513
  Receipt Date: 20110509
  Transmission Date: 20111010
  Serious: Yes (Hospitalization)
  Sender: FDA-Public Use
  Company Number: B0718303A

PATIENT
  Sex: Female
  Weight: 71 kg

DRUGS (14)
  1. CALCIUM [Concomitant]
     Route: 048
  2. MOVIPREP [Concomitant]
     Indication: CONSTIPATION
     Route: 048
  3. ARANESP [Concomitant]
     Route: 058
  4. ACYCLOVIR [Concomitant]
     Route: 048
  5. DOXAZOSIN MESILATE [Concomitant]
     Route: 048
  6. LERCANIDIPINE [Concomitant]
     Route: 048
  7. TOTALIP [Concomitant]
     Route: 048
  8. BENEXOL [Concomitant]
     Route: 048
  9. MYCOSTATIN [Concomitant]
     Route: 002
  10. LANSOX [Concomitant]
     Route: 048
  11. LEUKERAN [Suspect]
     Dates: start: 20110221
  12. COLECALCIFEROL [Concomitant]
     Indication: CONSTIPATION
     Route: 048
  13. ALLOPURINOL [Concomitant]
     Route: 048
  14. CANDESARTAN CILEXETIL/HYDROCHLOROTHIAZIDE [Concomitant]
     Route: 048

REACTIONS (1)
  - ANAEMIA HAEMOLYTIC AUTOIMMUNE [None]
